FAERS Safety Report 18026601 (Version 1)
Quarter: 2020Q3

REPORT INFORMATION
  Report Type: Report from Study
  Country: US (occurrence: US)
  Receive Date: 20200715
  Receipt Date: 20200715
  Transmission Date: 20201103
  Serious: Yes (Death)
  Sender: FDA-Public Use
  Company Number: US-EMD SERONO-9174142

PATIENT
  Age: 27 Year
  Sex: Female

DRUGS (1)
  1. MAVENCLAD [Suspect]
     Active Substance: CLADRIBINE
     Indication: MULTIPLE SCLEROSIS
     Route: 048
     Dates: start: 20191217

REACTIONS (2)
  - Oesophageal ulcer haemorrhage [Fatal]
  - Oesophageal ulcer perforation [Fatal]

NARRATIVE: CASE EVENT DATE: 20200305
